FAERS Safety Report 6118730-2 (Version None)
Quarter: 2009Q1

REPORT INFORMATION
  Report Type: 
  Country: None (occurrence: None)
  Receive Date: 20090314
  Receipt Date: 20090224
  Transmission Date: 20090719
  Serious: No
  Sender: FDA-Public Use
  Company Number: US-ABBOTT-09P-163-0559292-00

PATIENT
  Sex: Male
  Weight: 63.56 kg

DRUGS (5)
  1. HUMIRA [Suspect]
     Indication: COLITIS ULCERATIVE
     Dates: start: 20090221, end: 20090221
  2. ASACOL [Concomitant]
     Indication: COLITIS ULCERATIVE
     Dosage: 8 PILLS
  3. PREDNISONE [Concomitant]
     Indication: COLITIS ULCERATIVE
  4. GENGRAF [Concomitant]
     Indication: LIVER TRANSPLANT
  5. ACTIGALL [Concomitant]
     Indication: LIVER DISORDER

REACTIONS (2)
  - INCORRECT DOSE ADMINISTERED [None]
  - WRONG TECHNIQUE IN DRUG USAGE PROCESS [None]
